FAERS Safety Report 8881044 (Version 4)
Quarter: 2014Q1

REPORT INFORMATION
  Report Type: Spontaneous
  Country: BR (occurrence: BR)
  Receive Date: 20121101
  Receipt Date: 20140113
  Transmission Date: 20141002
  Serious: No
  Sender: FDA-Public Use
  Company Number: BR-US-EMD SERONO, INC.-7163616

PATIENT
  Age: 48 Year
  Sex: Female

DRUGS (6)
  1. REBIF [Suspect]
     Indication: RELAPSING-REMITTING MULTIPLE SCLEROSIS
  2. IBUPROFEN [Concomitant]
     Indication: PRODUCT USED FOR UNKNOWN INDICATION
  3. CLARITIN-D [Concomitant]
     Indication: PRODUCT USED FOR UNKNOWN INDICATION
  4. RIVOTRIL [Concomitant]
     Indication: PRODUCT USED FOR UNKNOWN INDICATION
     Dosage: DROPS
  5. FLUOXETINE [Concomitant]
     Indication: PRODUCT USED FOR UNKNOWN INDICATION
  6. VITAMIN D                          /00107901/ [Concomitant]
     Indication: PRODUCT USED FOR UNKNOWN INDICATION

REACTIONS (15)
  - Dizziness [Not Recovered/Not Resolved]
  - Burning sensation [Unknown]
  - Sensation of heaviness [Unknown]
  - Asthenia [Unknown]
  - Feeling abnormal [Unknown]
  - Paraesthesia [Unknown]
  - Somnolence [Unknown]
  - Diarrhoea [Recovering/Resolving]
  - Faecal incontinence [Unknown]
  - Muscle spasms [Not Recovered/Not Resolved]
  - Arthralgia [Unknown]
  - Influenza like illness [Not Recovered/Not Resolved]
  - Injection site haematoma [Not Recovered/Not Resolved]
  - Injection site erythema [Not Recovered/Not Resolved]
  - Fatigue [Unknown]
